FAERS Safety Report 4357792-X (Version None)
Quarter: 2004Q2

REPORT INFORMATION
  Report Type: 
  Country: None (occurrence: None)
  Receive Date: 20040513
  Receipt Date: 20031104
  Transmission Date: 20050107
  Serious: Yes (Disabling)
  Sender: FDA-Public Use
  Company Number: HU-MERCK-0311HUN00004

PATIENT
  Age: 61 Year
  Sex: Female

DRUGS (1)
  1. FOSAMAX [Suspect]
     Indication: OSTEOPOROSIS
     Route: 048
     Dates: start: 20030812, end: 20030930

REACTIONS (10)
  - BLINDNESS [None]
  - BONE PAIN [None]
  - BREAST PAIN [None]
  - CONJUNCTIVITIS [None]
  - EYE INFLAMMATION [None]
  - EYE PAIN [None]
  - HORDEOLUM [None]
  - IRITIS [None]
  - PAIN [None]
  - UTERINE PAIN [None]
